FAERS Safety Report 24014009 (Version 1)
Quarter: 2024Q2

REPORT INFORMATION
  Report Type: Report from Study
  Country: US (occurrence: US)
  Receive Date: 20240626
  Receipt Date: 20240626
  Transmission Date: 20240716
  Serious: Yes (Other)
  Sender: FDA-Public Use
  Company Number: US-ABBVIE-5813159

PATIENT
  Sex: Male

DRUGS (2)
  1. SKYRIZI [Suspect]
     Active Substance: RISANKIZUMAB-RZAA
     Indication: Psoriasis
     Route: 058
     Dates: start: 20221216
  2. Covid-19 vaccines [Concomitant]
     Indication: COVID-19 immunisation
     Dosage: COVID SHOT, ONE IN ONCE
     Route: 030

REACTIONS (3)
  - Surgery [Recovering/Resolving]
  - Psoriasis [Recovering/Resolving]
  - Sciatica [Recovering/Resolving]
